FAERS Safety Report 21328950 (Version 1)
Quarter: 2022Q3

REPORT INFORMATION
  Report Type: Other
  Country: US (occurrence: None)
  Receive Date: 20220913
  Receipt Date: 20220913
  Transmission Date: 20221027
  Serious: Yes (Other)
  Sender: FDA-Public Use
  Company Number: US-ROCHE-3175406

PATIENT
  Sex: Female

DRUGS (2)
  1. OCREVUS [Suspect]
     Active Substance: OCRELIZUMAB
     Indication: Relapsing multiple sclerosis
     Dosage: 600 MG EVERY 6 MONTH, DOT: 10-DEC-2019, 28-FEB-2020, 27-AUG-2020, 05-MAR-2021, 04-APR-2022
     Route: 042
     Dates: start: 20191210
  2. TYSABRI [Concomitant]
     Active Substance: NATALIZUMAB

REACTIONS (3)
  - Gait disturbance [Unknown]
  - Hypoaesthesia [Unknown]
  - Tachycardia [Unknown]
